FAERS Safety Report 4841237-7 (Version None)
Quarter: 2005Q4

REPORT INFORMATION
  Report Type: 
  Country: None (occurrence: None)
  Receive Date: 20051130
  Receipt Date: 20051123
  Transmission Date: 20060501
  Serious: Yes (Hospitalization)
  Sender: FDA-Public Use
  Company Number: FR-AVENTIS-200513851FR

PATIENT
  Age: 60 Year
  Sex: Male

DRUGS (5)
  1. ARAVA [Suspect]
     Indication: RHEUMATOID ARTHRITIS
     Route: 048
     Dates: start: 20050526, end: 20050722
  2. SOLU-MEDROL [Concomitant]
     Indication: RHEUMATOID ARTHRITIS
     Route: 048
  3. MOPRAL [Concomitant]
     Indication: PROPHYLAXIS
     Route: 048
  4. DAFALGAN [Concomitant]
     Indication: ARTHRALGIA
     Route: 048
  5. OROCAL VITAMINE D3 [Concomitant]
     Indication: CALCIUM DEFICIENCY
     Route: 048

REACTIONS (4)
  - MUSCLE HYPERTROPHY [None]
  - POLYMYOSITIS [None]
  - RASH [None]
  - WEIGHT DECREASED [None]
